FAERS Safety Report 23313363 (Version 1)
Quarter: 2023Q4

REPORT INFORMATION
  Report Type: Other
  Country: TW (occurrence: None)
  Receive Date: 20231219
  Receipt Date: 20231219
  Transmission Date: 20240109
  Serious: Yes (Other)
  Sender: FDA-Public Use
  Company Number: TW-ROCHE-3339761

PATIENT
  Age: 62 Year
  Sex: Female
  Weight: 50 kg

DRUGS (2)
  1. AVASTIN [Suspect]
     Active Substance: BEVACIZUMAB
     Indication: Non-small cell lung cancer
     Route: 065
  2. TECENTRIQ [Suspect]
     Active Substance: ATEZOLIZUMAB
     Indication: Non-small cell lung cancer
     Route: 065

REACTIONS (2)
  - Neoplasm malignant [Not Recovered/Not Resolved]
  - Drug resistance [Not Recovered/Not Resolved]
